FAERS Safety Report 19057241 (Version 1)
Quarter: 2021Q1

REPORT INFORMATION
  Report Type: Spontaneous
  Country: US (occurrence: US)
  Receive Date: 20210324
  Receipt Date: 20210324
  Transmission Date: 20210420
  Serious: Yes (Hospitalization, Other)
  Sender: FDA-Public Use
  Company Number: US-PFIZER INC-2017135054

PATIENT
  Age: 29 Year
  Sex: Male

DRUGS (7)
  1. XELJANZ [Suspect]
     Active Substance: TOFACITINIB CITRATE
     Indication: RHEUMATOID ARTHRITIS
     Dosage: 10 MG, 2X/DAY (2 IN THE AM AND 2 IN THE PM)
  2. XELJANZ [Suspect]
     Active Substance: TOFACITINIB CITRATE
     Indication: ALOPECIA
     Dosage: 20 MG, ONCE A DAY (TAKE 2 TABS: 10 MG EVERY AM) [TAKE 2 TABS (10 MG) QAM]
  3. XELJANZ [Suspect]
     Active Substance: TOFACITINIB CITRATE
     Indication: CROHN^S DISEASE
     Dosage: 15 MG, DAILY (TAKE 2 TABS (10MG) QAM AND 1 TAB ( 5MG) QHS)
     Route: 048
  4. XELJANZ [Suspect]
     Active Substance: TOFACITINIB CITRATE
     Dosage: 10 MG, 2X/DAY (2 TABLETS, BID)
     Route: 048
  5. XELJANZ [Suspect]
     Active Substance: TOFACITINIB CITRATE
     Dosage: 5 MG, 2X/DAY
     Route: 048
  6. XELJANZ [Suspect]
     Active Substance: TOFACITINIB CITRATE
     Dosage: 5 MG, UNK
  7. XELJANZ [Suspect]
     Active Substance: TOFACITINIB CITRATE
     Indication: ALOPECIA AREATA
     Dosage: 5 MG, ONCE A DAY (1 TAB: 5MG AT BEDTIME) [1 TAB (5 MG) QHS.]

REACTIONS (4)
  - Vesical fistula [Unknown]
  - Crohn^s disease [Unknown]
  - Enteritis [Unknown]
  - Drug effective for unapproved indication [Unknown]
